FAERS Safety Report 8581543-6 (Version None)
Quarter: 2012Q3

REPORT INFORMATION
  Report Type: 
  Country: None (occurrence: None)
  Receive Date: 20120809
  Receipt Date: 20110824
  Transmission Date: 20120928
  Serious: No
  Sender: FDA-Public Use
  Company Number: US-MUTUAL PHARMACEUTICAL COMPANY, INC.-DXCY20110014

PATIENT
  Sex: Male
  Weight: 45.4 kg

DRUGS (1)
  1. DOXYCYCLINE HYCLATE [Suspect]
     Indication: ACNE
     Route: 048
     Dates: start: 20110807, end: 20110821

REACTIONS (7)
  - MICTURITION URGENCY [None]
  - ABDOMINAL DISCOMFORT [None]
  - POLLAKIURIA [None]
  - NAUSEA [None]
  - GASTROINTESTINAL DISORDER [None]
  - VOMITING [None]
  - GASTRITIS [None]
